FAERS Safety Report 6663295-X (Version None)
Quarter: 2010Q1

REPORT INFORMATION
  Report Type: 
  Country: None (occurrence: None)
  Receive Date: 20100331
  Receipt Date: 20100331
  Transmission Date: 20100710
  Serious: Yes (Hospitalization)
  Sender: FDA-Public Use
  Company Number: None

PATIENT
  Age: 71 Year
  Sex: Female

DRUGS (1)
  1. REGLAN [Suspect]
     Indication: MIGRAINE
     Dosage: 10 MG ONCE IV PUSH
     Route: 042
     Dates: start: 20100327, end: 20100327

REACTIONS (3)
  - MUSCLE SPASMS [None]
  - RESTLESSNESS [None]
  - TARDIVE DYSKINESIA [None]
